FAERS Safety Report 18077566 (Version 1)
Quarter: 2020Q3

REPORT INFORMATION
  Report Type: Other
  Country: NO (occurrence: NO)
  Receive Date: 20200727
  Receipt Date: 20200727
  Transmission Date: 20201103
  Serious: Yes (Hospitalization)
  Sender: FDA-Public Use
  Company Number: NO-NOMAADVRE-RELISSO-2016-21845

PATIENT

DRUGS (5)
  1. GLUCAGON NOVO NORDISK [Suspect]
     Active Substance: GLUCAGON
     Indication: MAGNETIC RESONANCE IMAGING
     Dosage: .5 ML, SINGLE
     Route: 040
     Dates: start: 20160414, end: 20160414
  2. MANNITOL. [Suspect]
     Active Substance: MANNITOL
     Indication: MAGNETIC RESONANCE IMAGING
     Dosage: 500 ML, SINGLE
     Route: 048
     Dates: start: 20160414, end: 20160414
  3. MANNITOL. [Suspect]
     Active Substance: MANNITOL
     Indication: OFF LABEL USE
  4. OMNISCAN [Suspect]
     Active Substance: GADODIAMIDE
     Indication: PRODUCT USED FOR UNKNOWN INDICATION
     Dosage: 14 ML, SINGLE
     Route: 040
     Dates: start: 20160414, end: 20160414
  5. OMNISCAN [Suspect]
     Active Substance: GADODIAMIDE
     Indication: MAGNETIC RESONANCE IMAGING

REACTIONS (6)
  - Vomiting [Unknown]
  - Dizziness [Unknown]
  - Muscular weakness [Unknown]
  - Chills [Unknown]
  - Nausea [Unknown]
  - Malaise [Unknown]

NARRATIVE: CASE EVENT DATE: 20160414
